FAERS Safety Report 4395052-1 (Version None)
Quarter: 2004Q3

REPORT INFORMATION
  Report Type: 
  Country: None (occurrence: None)
  Receive Date: 20040707
  Receipt Date: 20040621
  Transmission Date: 20050211
  Serious: Yes (Hospitalization)
  Sender: FDA-Public Use
  Company Number: US-JNJFOC-20040605733

PATIENT
  Age: 72 Year
  Sex: Female
  Weight: 66.7 kg

DRUGS (16)
  1. ULTRAM [Suspect]
     Indication: DRUG USE FOR UNKNOWN INDICATION
     Dosage: ORAL
     Route: 048
  2. ZOLEDRONATE (ZOLEDRONIC ACID) INJECTION [Suspect]
     Indication: OSTEOPOROSIS POSTMENOPAUSAL
     Dosage: INTRAVENOUS
     Route: 042
  3. LORAZEPAM [Suspect]
     Indication: DRUG USE FOR UNKNOWN INDICATION
     Dosage: INTRAVENOUS
     Route: 042
  4. PLACEBO (PLACEBO) [Suspect]
     Indication: OSTEOPOROSIS
     Dates: start: 20030522
  5. NEXIUM [Concomitant]
  6. KLONOPIN [Concomitant]
  7. ELAVIL [Concomitant]
  8. MULTIVITAMIN [Concomitant]
  9. MAGNESIUM (MAGNESIUM) [Concomitant]
  10. ZINC (ZINC) [Concomitant]
  11. VITAMIN B COMPLEX (B-KOMPLEX ^LECIVA^) [Concomitant]
  12. DARVOCET N (PROPACET) [Concomitant]
  13. ASPIRIN [Concomitant]
  14. VITAMIN D [Concomitant]
  15. VITAMIN C (ASCORBIC ACID) [Concomitant]
  16. LIPITOR [Concomitant]

REACTIONS (12)
  - ANAEMIA POSTOPERATIVE [None]
  - ANXIETY [None]
  - ARTHRITIS [None]
  - BRADYCARDIA [None]
  - DISEASE PROGRESSION [None]
  - OSTEOPOROSIS [None]
  - POST PROCEDURAL COMPLICATION [None]
  - POST PROCEDURAL PAIN [None]
  - PROCEDURAL HYPERTENSION [None]
  - PROCEDURAL HYPOTENSION [None]
  - PRURITUS [None]
  - SYNCOPE VASOVAGAL [None]
